FAERS Safety Report 4758700-X (Version None)
Quarter: 2005Q3

REPORT INFORMATION
  Report Type: 
  Country: None (occurrence: None)
  Receive Date: 20050826
  Receipt Date: 20050819
  Transmission Date: 20060218
  Serious: Yes (Death, Hospitalization)
  Sender: FDA-Public Use
  Company Number: 163-20785-05070006

PATIENT
  Age: 51 Year
  Sex: Female

DRUGS (11)
  1. THALOMID [Suspect]
     Indication: MULTIPLE MYELOMA
     Dosage: 100-200MG, DAILY, ORAL
     Route: 048
     Dates: start: 20030610, end: 20041201
  2. DECADRON [Suspect]
     Dosage: SEE IMAGE
     Dates: end: 20030710
  3. DECADRON [Suspect]
     Dosage: SEE IMAGE
     Dates: end: 20031029
  4. DECADRON [Suspect]
     Dosage: SEE IMAGE
     Dates: end: 20041209
  5. MELPHALAN (MELPHALAN) [Suspect]
     Indication: MULTIPLE MYELOMA
     Dosage: UNK
     Route: 065
  6. CISPLATIN [Suspect]
     Indication: MULTIPLE MYELOMA
     Dosage: UNK
     Route: 065
  7. ADRIAMYCIN PFS [Suspect]
     Indication: MULTIPLE MYELOMA
     Dosage: UNK
     Route: 065
  8. CYCLOPHOSPHAMIDE [Suspect]
     Indication: MULTIPLE MYELOMA
     Dosage: UNK
     Route: 065
  9. ETOPOSIDE [Suspect]
     Indication: MULTIPLE MYELOMA
     Dosage: UNK
     Route: 065
  10. BORTEZOMIB (BORTEZOMIB) [Suspect]
     Indication: MULTIPLE MYELOMA
     Dosage: 5 CYCLES
     Dates: end: 20041209
  11. PENTAMIDINE (PENTAMIDINE) [Concomitant]

REACTIONS (14)
  - ANAEMIA [None]
  - BRADYCARDIA [None]
  - DISEASE PROGRESSION [None]
  - HAEMODIALYSIS [None]
  - HYPERCALCAEMIA [None]
  - MULTIPLE MYELOMA [None]
  - MYOPATHY STEROID [None]
  - NEUTROPENIA [None]
  - PARAINFLUENZAE VIRUS INFECTION [None]
  - RENAL FAILURE [None]
  - RESPIRATORY FAILURE [None]
  - STAPHYLOCOCCAL BACTERAEMIA [None]
  - SYNCOPE [None]
  - THROMBOCYTOPENIA [None]
